FAERS Safety Report 22163115 (Version 1)
Quarter: 2023Q2

REPORT INFORMATION
  Report Type: Spontaneous
  Country: CN (occurrence: None)
  Receive Date: 20230401
  Receipt Date: 20230401
  Transmission Date: 20230722
  Serious: Yes (Other)
  Sender: FDA-Public Use
  Company Number: CN-ROCHE-3321614

PATIENT
  Age: 16 Year
  Sex: Female

DRUGS (15)
  1. MABTHERA [Suspect]
     Active Substance: RITUXIMAB
     Indication: Diffuse large B-cell lymphoma
     Dosage: R-CHOP, ONE CYCLE FOR THREE WEEKS
     Route: 065
     Dates: start: 20220914
  2. MABTHERA [Suspect]
     Active Substance: RITUXIMAB
     Dosage: R-CHOP, ONE CYCLE FOR THREE WEEKS
     Route: 065
     Dates: start: 20221009
  3. MABTHERA [Suspect]
     Active Substance: RITUXIMAB
     Dosage: R-CHOP
     Route: 065
     Dates: start: 20221030
  4. CYCLOPHOSPHAMIDE [Concomitant]
     Active Substance: CYCLOPHOSPHAMIDE
     Dosage: R-CHOP, ONE CYCLE FOR THREE WEEKS
     Dates: start: 20220914
  5. CYCLOPHOSPHAMIDE [Concomitant]
     Active Substance: CYCLOPHOSPHAMIDE
     Dosage: R-CHOP, ONE CYCLE FOR THREE WEEKS
     Dates: start: 20221009
  6. CYCLOPHOSPHAMIDE [Concomitant]
     Active Substance: CYCLOPHOSPHAMIDE
     Dosage: R-CHOP
     Dates: start: 20221030
  7. EPIRUBICIN [Concomitant]
     Active Substance: EPIRUBICIN
     Dosage: R-CHOP, ONE CYCLE FOR THREE WEEKS
     Dates: start: 20220914
  8. EPIRUBICIN [Concomitant]
     Active Substance: EPIRUBICIN
     Dosage: R-CHOP, ONE CYCLE FOR THREE WEEKS
     Dates: start: 20221009
  9. EPIRUBICIN [Concomitant]
     Active Substance: EPIRUBICIN
     Dosage: R-CHOP
     Dates: start: 20221030
  10. VINCRISTINE [Concomitant]
     Active Substance: VINCRISTINE
     Dosage: R-CHOP, ONE CYCLE FOR THREE WEEKS
     Dates: start: 20220914
  11. VINCRISTINE [Concomitant]
     Active Substance: VINCRISTINE
     Dosage: R-CHOP, ONE CYCLE FOR THREE WEEKS
     Dates: start: 20221009
  12. VINCRISTINE [Concomitant]
     Active Substance: VINCRISTINE
     Dosage: R-CHOP
     Dates: start: 20221030
  13. PREDNISONE [Concomitant]
     Active Substance: PREDNISONE
     Dosage: R-CHOP, ONE CYCLE FOR THREE WEEKS
     Dates: start: 20220914
  14. PREDNISONE [Concomitant]
     Active Substance: PREDNISONE
     Dosage: R-CHOP, ONE CYCLE FOR THREE WEEKS
     Dates: start: 20221009
  15. PREDNISONE [Concomitant]
     Active Substance: PREDNISONE
     Dosage: R-CHOP
     Dates: start: 20221030

REACTIONS (4)
  - Agranulocytosis [Recovering/Resolving]
  - Pyrexia [Recovering/Resolving]
  - Anaemia [Unknown]
  - Disease progression [Unknown]

NARRATIVE: CASE EVENT DATE: 20221019
